FAERS Safety Report 13851028 (Version 2)
Quarter: 2017Q4

REPORT INFORMATION
  Report Type: Spontaneous
  Country: US (occurrence: US)
  Receive Date: 20170809
  Receipt Date: 20171012
  Transmission Date: 20180320
  Serious: No
  Sender: FDA-Public Use
  Company Number: US-GLAXOSMITHKLINE-US2017GSK097580

PATIENT
  Sex: Female
  Weight: 86.62 kg

DRUGS (1)
  1. NUCALA [Suspect]
     Active Substance: MEPOLIZUMAB
     Indication: ASTHMA
     Dosage: 100 MG, UNK
     Route: 058
     Dates: start: 201701, end: 20170613

REACTIONS (2)
  - Drug hypersensitivity [Unknown]
  - Eczema [Unknown]
